FAERS Safety Report 4931634-3 (Version None)
Quarter: 2006Q1

REPORT INFORMATION
  Report Type: 
  Country: None (occurrence: None)
  Receive Date: 20060303
  Receipt Date: 20051102
  Transmission Date: 20060701
  Serious: No
  Sender: FDA-Public Use
  Company Number: US-BRISTOL-MYERS SQUIBB COMPANY-13164165

PATIENT
  Sex: Male
  Weight: 57 kg

DRUGS (6)
  1. ERBITUX [Suspect]
     Indication: COLORECTAL CANCER METASTATIC
     Route: 042
     Dates: start: 20051026, end: 20051026
  2. IRINOTECAN HCL [Concomitant]
     Indication: COLORECTAL CANCER METASTATIC
  3. PEPCID [Concomitant]
     Indication: PREMEDICATION
  4. BENADRYL [Concomitant]
     Indication: PREMEDICATION
  5. DECADRON SRC [Concomitant]
     Indication: PREMEDICATION
     Route: 042
  6. TYLENOL (CAPLET) [Concomitant]
     Indication: PREMEDICATION

REACTIONS (3)
  - PLATELET COUNT DECREASED [None]
  - RASH [None]
  - SWOLLEN TONGUE [None]
